FAERS Safety Report 20651781 (Version 3)
Quarter: 2022Q3

REPORT INFORMATION
  Report Type: Report from Study
  Country: SE (occurrence: SE)
  Receive Date: 20220330
  Receipt Date: 20220720
  Transmission Date: 20221026
  Serious: Yes (Hospitalization)
  Sender: FDA-Public Use
  Company Number: SE-ABBVIE-22K-150-4336739-00

PATIENT
  Sex: Female

DRUGS (3)
  1. CARBIDOPA\LEVODOPA [Suspect]
     Active Substance: CARBIDOPA\LEVODOPA
     Indication: Parkinson^s disease
     Dosage: THERAPY DURATION: REMAINS AT 16H
     Route: 050
     Dates: start: 20220314
  2. CARBIDOPA\LEVODOPA [Suspect]
     Active Substance: CARBIDOPA\LEVODOPA
  3. QUETIAPINE [Concomitant]
     Active Substance: QUETIAPINE
     Indication: Product used for unknown indication

REACTIONS (7)
  - Fracture [Unknown]
  - Fall [Recovered/Resolved]
  - Device dislocation [Recovered/Resolved]
  - Device dislocation [Not Recovered/Not Resolved]
  - Nightmare [Recovering/Resolving]
  - Somnambulism [Unknown]
  - Hallucination [Unknown]

NARRATIVE: CASE EVENT DATE: 20220101
